FAERS Safety Report 20550699 (Version 1)
Quarter: 2022Q1

REPORT INFORMATION
  Report Type: Spontaneous
  Country: US (occurrence: US)
  Receive Date: 20220304
  Receipt Date: 20220304
  Transmission Date: 20220424
  Serious: No
  Sender: FDA-Public Use
  Company Number: US-CIPLA LTD.-2021US06074

PATIENT

DRUGS (2)
  1. SERTRALINE [Suspect]
     Active Substance: SERTRALINE HYDROCHLORIDE
     Indication: Depression
     Dosage: 150 MILLIGRAM, QD
     Route: 065
     Dates: start: 20210819, end: 20210824
  2. SYNTHROID [Concomitant]
     Active Substance: LEVOTHYROXINE SODIUM
     Indication: Hyperthyroidism
     Dosage: 112 (UNITS UNSPECIFIED)
     Route: 065
     Dates: start: 201209

REACTIONS (5)
  - Mental disorder [Recovering/Resolving]
  - Depression [Recovered/Resolved]
  - Hypersensitivity [Recovered/Resolved]
  - Irritability [Recovered/Resolved]
  - Fatigue [Recovered/Resolved]

NARRATIVE: CASE EVENT DATE: 20210801
